FAERS Safety Report 4404448-0 (Version None)
Quarter: 2004Q3

REPORT INFORMATION
  Report Type: 
  Country: None (occurrence: None)
  Receive Date: 20040720
  Receipt Date: 20040707
  Transmission Date: 20050211
  Serious: Yes (Life-Threatening, Hospitalization)
  Sender: FDA-Public Use
  Company Number: US-JNJFOC-20040702146

PATIENT
  Age: 58 Year
  Sex: Female
  Weight: 62.1428 kg

DRUGS (12)
  1. INFLIXIMAB(INFLIXIMAB , RECOMBINANT) LYOPHILIZED POWDER [Suspect]
     Indication: CROHN'S DISEASE
     Dosage: SEE IMAGE
     Route: 042
     Dates: start: 20030313
  2. INFLIXIMAB(INFLIXIMAB , RECOMBINANT) LYOPHILIZED POWDER [Suspect]
     Indication: CROHN'S DISEASE
     Dosage: SEE IMAGE
     Route: 042
     Dates: start: 20030402
  3. INFLIXIMAB(INFLIXIMAB , RECOMBINANT) LYOPHILIZED POWDER [Suspect]
     Indication: CROHN'S DISEASE
     Dosage: SEE IMAGE
     Route: 042
     Dates: start: 20030513
  4. INFLIXIMAB(INFLIXIMAB , RECOMBINANT) LYOPHILIZED POWDER [Suspect]
     Indication: CROHN'S DISEASE
     Dosage: SEE IMAGE
     Route: 042
     Dates: start: 20030903
  5. INFLIXIMAB(INFLIXIMAB , RECOMBINANT) LYOPHILIZED POWDER [Suspect]
     Indication: CROHN'S DISEASE
     Dosage: SEE IMAGE
     Route: 042
     Dates: start: 20031029
  6. INFLIXIMAB(INFLIXIMAB , RECOMBINANT) LYOPHILIZED POWDER [Suspect]
     Indication: CROHN'S DISEASE
     Dosage: SEE IMAGE
     Route: 042
     Dates: start: 20031223
  7. INFLIXIMAB(INFLIXIMAB , RECOMBINANT) LYOPHILIZED POWDER [Suspect]
     Indication: CROHN'S DISEASE
     Dosage: SEE IMAGE
     Route: 042
     Dates: start: 20040511
  8. ANTIBIOTICS (ANTIBIOTICS) [Concomitant]
  9. CORTICOSTEROIDS (CORTICOSTEROIDS) [Concomitant]
  10. PREDNISONE [Concomitant]
  11. ACETAMINOPHEN [Concomitant]
  12. ANTIHISTAMINES (ANTIHISTAMINES) [Concomitant]

REACTIONS (5)
  - ADRENOCORTICAL INSUFFICIENCY ACUTE [None]
  - CANDIDIASIS [None]
  - CATHETER RELATED INFECTION [None]
  - DEHYDRATION [None]
  - PNEUMONIA KLEBSIELLA [None]
